FAERS Safety Report 8510221-4 (Version None)
Quarter: 2012Q3

REPORT INFORMATION
  Report Type: 
  Country: None (occurrence: None)
  Receive Date: 20120713
  Receipt Date: 20120706
  Transmission Date: 20120928
  Serious: Yes (Hospitalization, Other)
  Sender: FDA-Public Use
  Company Number: FR-VERTEX PHARMACEUTICALS INC.-AE-2011-000213

PATIENT
  Sex: Male
  Weight: 64 kg

DRUGS (13)
  1. LOVENOX [Concomitant]
     Indication: ANTICOAGULANT THERAPY
     Route: 058
  2. EPREX [Concomitant]
     Indication: ANAEMIA
  3. LASIX [Concomitant]
     Indication: DIURETIC THERAPY
  4. NEORECORMON [Concomitant]
     Indication: ANAEMIA
     Route: 058
     Dates: start: 20110323, end: 20110504
  5. TRANSIPEG [Concomitant]
     Indication: HYPOKALAEMIA
  6. VX-950 [Suspect]
     Indication: HEPATITIS C
     Route: 048
     Dates: start: 20110220, end: 20110513
  7. LEVOTHYROXINE SODIUM [Concomitant]
     Indication: HYPOTHYROIDISM
     Route: 048
  8. ALDACTONE [Concomitant]
     Indication: HYPERALDOSTERONISM
  9. RIBAVIRIN [Concomitant]
     Indication: HEPATITIS C
     Route: 048
     Dates: start: 20110220
  10. RIBAVIRIN [Concomitant]
     Route: 048
     Dates: start: 20110320, end: 20110601
  11. PEGASYS [Concomitant]
     Route: 058
     Dates: start: 20110320, end: 20110601
  12. POTASSIUM CHLORIDE [Concomitant]
     Indication: HYPOKALAEMIA
  13. PEGASYS [Concomitant]
     Indication: HEPATITIS C
     Route: 058
     Dates: start: 20110220

REACTIONS (4)
  - RASH [None]
  - TOXIC SKIN ERUPTION [None]
  - STAPHYLOCOCCAL INFECTION [None]
  - INAPPROPRIATE SCHEDULE OF DRUG ADMINISTRATION [None]
